FAERS Safety Report 4815651-X (Version None)
Quarter: 2005Q4

REPORT INFORMATION
  Report Type: 
  Country: None (occurrence: None)
  Receive Date: 20051026
  Receipt Date: 20051017
  Transmission Date: 20060501
  Serious: Yes (Hospitalization, Other)
  Sender: FDA-Public Use
  Company Number: 2005125255

PATIENT
  Sex: Female

DRUGS (5)
  1. BEXTRA [Suspect]
     Indication: PAIN
  2. CELEBREX [Suspect]
     Indication: ILL-DEFINED DISORDER
     Dates: start: 20050101
  3. PREDNISONE [Suspect]
     Indication: JOINT SWELLING
     Dates: start: 20050101
  4. PREDNISONE [Suspect]
     Indication: PAIN
     Dates: start: 20050101
  5. ALL OTHER THERAPEUTIC PRODUCTS (ALL OTHER THERAPEUTIC PRODUCTS [Suspect]
     Indication: PAIN
     Dates: start: 20050101, end: 20050101

REACTIONS (10)
  - ARTHRALGIA [None]
  - DRUG INEFFECTIVE [None]
  - GENERAL PHYSICAL HEALTH DETERIORATION [None]
  - JOINT SWELLING [None]
  - LUNG OPERATION [None]
  - NAUSEA [None]
  - OEDEMA PERIPHERAL [None]
  - OESOPHAGEAL DILATION PROCEDURE [None]
  - PAIN IN EXTREMITY [None]
  - SKIN ULCER [None]
